FAERS Safety Report 9200472 (Version 1)
Quarter: 2013Q1

REPORT INFORMATION
  Report Type: Spontaneous
  Country: SI (occurrence: SI)
  Receive Date: 20130329
  Receipt Date: 20130329
  Transmission Date: 20140127
  Serious: Yes (Hospitalization)
  Sender: FDA-Public Use
  Company Number: PHHY2013SI030685

PATIENT
  Sex: Male

DRUGS (2)
  1. EXELON PATCH [Suspect]
     Indication: DEMENTIA ALZHEIMER^S TYPE
     Dosage: 4.6 MG/ 24 HOURS
     Route: 062
  2. EXELON PATCH [Suspect]
     Dosage: 9.5 MG/ 24 HOURS
     Route: 062

REACTIONS (1)
  - Deep vein thrombosis [Recovered/Resolved]
